FAERS Safety Report 20945348 (Version 1)
Quarter: 2022Q2

REPORT INFORMATION
  Report Type: Spontaneous
  Country: JP (occurrence: JP)
  Receive Date: 20220610
  Receipt Date: 20220610
  Transmission Date: 20220721
  Serious: Yes (Other)
  Sender: FDA-Public Use
  Company Number: JP-ELI_LILLY_AND_COMPANY-JP202201003304

PATIENT
  Age: 67 Year

DRUGS (2)
  1. VERZENIO [Suspect]
     Active Substance: ABEMACICLIB
     Indication: Breast cancer recurrent
     Dosage: 100 MG, UNKNOWN
     Route: 048
     Dates: start: 20200122, end: 20220523
  2. ANASTROZOLE [Concomitant]
     Active Substance: ANASTROZOLE
     Indication: Breast cancer recurrent
     Dosage: UNK
     Dates: start: 20200122

REACTIONS (3)
  - Myelosuppression [Unknown]
  - Diarrhoea [Unknown]
  - Nausea [Unknown]
